FAERS Safety Report 5518250-X (Version None)
Quarter: 2007Q4

REPORT INFORMATION
  Report Type: 
  Country: None (occurrence: None)
  Receive Date: 20071115
  Receipt Date: 20071112
  Transmission Date: 20080405
  Serious: Yes (Other)
  Sender: FDA-Public Use
  Company Number: A0693937A

PATIENT
  Age: 80 Year
  Sex: Female

DRUGS (2)
  1. ADVAIR DISKUS 100/50 [Suspect]
     Route: 055
     Dates: start: 20071105
  2. OTHER MEDICATIONS [Concomitant]

REACTIONS (1)
  - VISUAL ACUITY REDUCED [None]
